FAERS Safety Report 8152061-4 (Version None)
Quarter: 2012Q1

REPORT INFORMATION
  Report Type: 
  Country: None (occurrence: None)
  Receive Date: 20120221
  Receipt Date: 20120217
  Transmission Date: 20120608
  Serious: Yes (Other)
  Sender: FDA-Public Use
  Company Number: JP-PFIZER INC-2012043852

PATIENT
  Age: 51 Year
  Sex: Female

DRUGS (1)
  1. ALPRAZOLAM [Suspect]
     Dosage: 0.4 MG, 3X/DAY
     Route: 048

REACTIONS (1)
  - RENAL IMPAIRMENT [None]
